FAERS Safety Report 5169737-3 (Version None)
Quarter: 2006Q4

REPORT INFORMATION
  Report Type: 
  Country: None (occurrence: None)
  Receive Date: 20061212
  Receipt Date: 20061130
  Transmission Date: 20070319
  Serious: Yes (Other)
  Sender: FDA-Public Use
  Company Number: PHHO2006JP20546

PATIENT
  Age: 68 Year
  Sex: Female

DRUGS (2)
  1. LASIX [Concomitant]
     Indication: OEDEMA
     Dosage: 20 MG
     Route: 042
     Dates: start: 20060831, end: 20060914
  2. ACLASTA [Suspect]
     Indication: HYPERCALCAEMIA OF MALIGNANCY
     Dosage: 3 MG
     Route: 042
     Dates: start: 20060831

REACTIONS (5)
  - BLOOD CREATININE INCREASED [None]
  - BLOOD UREA INCREASED [None]
  - HYDRONEPHROSIS [None]
  - NEPHROSTOMY [None]
  - RENAL DISORDER [None]
